FAERS Safety Report 14658842 (Version 2)
Quarter: 2018Q2

REPORT INFORMATION
  Report Type: Spontaneous
  Country: US (occurrence: US)
  Receive Date: 20180320
  Receipt Date: 20180422
  Transmission Date: 20180711
  Serious: No
  Sender: FDA-Public Use
  Company Number: US-APOTEX-2017AP021003

PATIENT
  Sex: Female

DRUGS (2)
  1. MODAFINIL TABLETS USP [Suspect]
     Active Substance: MODAFINIL
     Indication: DISTURBANCE IN ATTENTION
     Dosage: UNK
     Route: 065
     Dates: start: 2017
  2. MODAFINIL TABLETS USP [Suspect]
     Active Substance: MODAFINIL
     Indication: DEPRESSED LEVEL OF CONSCIOUSNESS

REACTIONS (4)
  - Malaise [Unknown]
  - Loss of personal independence in daily activities [Unknown]
  - Product substitution issue [Unknown]
  - Confusional state [Recovered/Resolved]
